FAERS Safety Report 26048780 (Version 1)
Quarter: 2025Q4

REPORT INFORMATION
  Report Type: Report from Study
  Country: US (occurrence: US)
  Receive Date: 20251115
  Receipt Date: 20251115
  Transmission Date: 20260117
  Serious: Yes (Other)
  Sender: ALEXION PHARMACEUTICALS
  Company Number: 202511NAM005435US

PATIENT
  Age: 29 Year
  Sex: Female

DRUGS (1)
  1. STRENSIQ [Suspect]
     Active Substance: ASFOTASE ALFA
     Indication: Phosphorus metabolism disorder
     Dosage: 1 MILLIGRAM/KILOGRAM, SIX TIMES/WEEK
     Route: 065

REACTIONS (20)
  - Dizziness [Unknown]
  - Hypotension [Unknown]
  - Presyncope [Unknown]
  - Hypersomnia [Unknown]
  - Chest pain [Unknown]
  - Drug intolerance [Unknown]
  - Headache [Unknown]
  - Dizziness [Unknown]
  - Iron deficiency anaemia [Unknown]
  - Somnolence [Unknown]
  - Feeling cold [Unknown]
  - Body temperature abnormal [Unknown]
  - Night sweats [Unknown]
  - Fatigue [Unknown]
  - Folliculitis [Unknown]
  - Skin lesion [Unknown]
  - Arthralgia [Unknown]
  - Back pain [Unknown]
  - Arthralgia [Unknown]
  - Musculoskeletal stiffness [Unknown]
